FAERS Safety Report 11030495 (Version 1)
Quarter: 2015Q2

REPORT INFORMATION
  Report Type: Spontaneous
  Country: US (occurrence: None)
  Receive Date: 20150409
  Receipt Date: 20150409
  Transmission Date: 20150821
  Serious: Yes (Hospitalization)
  Sender: FDA-Public Use
  Company Number: 2014FE02798

PATIENT
  Age: 15 Year
  Sex: Female

DRUGS (2)
  1. MINIRIN [Suspect]
     Active Substance: DESMOPRESSIN ACETATE
     Indication: VON WILLEBRAND^S DISEASE
     Dosage: NASAL
     Route: 045
     Dates: start: 20140919
  2. MINIRIN [Suspect]
     Active Substance: DESMOPRESSIN ACETATE
     Indication: HAEMORRHAGE
     Dosage: NASAL
     Route: 045
     Dates: start: 20140919

REACTIONS (1)
  - Meniscus operation [None]

NARRATIVE: CASE EVENT DATE: 20140919
